FAERS Safety Report 8178813 (Version 3)
Quarter: 2012Q4

REPORT INFORMATION
  Report Type: 
  Country: US (occurrence: US)
  Receive Date: 20111013
  Receipt Date: 20121026
  Transmission Date: 20130627
  Serious: Yes (Death, Hospitalization)
  Sender: FDA-Public Use
  Company Number: US-BAYER-2011-093439

PATIENT
  Age: 36 Year
  Sex: Female
  Weight: 90.7 kg

DRUGS (13)
  1. OCELLA [Suspect]
     Indication: UTERINE BLEEDING
     Dosage: UNK
     Dates: start: 20090526, end: 20090920
  2. MOTRIN [Concomitant]
     Dosage: UNK
  3. TYLENOL ARTHRITIS [Concomitant]
  4. IBUPROFEN [Concomitant]
  5. DEPODUR [Concomitant]
  6. EPINEPHRINE [Concomitant]
     Route: 042
  7. ATROPINE [Concomitant]
  8. NARCAN [Concomitant]
  9. BICARBONAT [Concomitant]
  10. DOPAMINE [Concomitant]
     Dosage: 10, 7.5, 5 mcg/kg/min
  11. BENADRYL [Concomitant]
  12. ANCEF [Concomitant]
  13. APAP W/CODEINE [Concomitant]
     Dosage: 300-30 mg Tab,UNK

REACTIONS (5)
  - Pulmonary embolism [Fatal]
  - Deep vein thrombosis [None]
  - Cardio-respiratory arrest [None]
  - Brain injury [None]
  - Injury [Fatal]
